FAERS Safety Report 7814152-4 (Version None)
Quarter: 2011Q4

REPORT INFORMATION
  Report Type: 
  Country: None (occurrence: None)
  Receive Date: 20111014
  Receipt Date: 20111005
  Transmission Date: 20120403
  Serious: Yes (Other)
  Sender: FDA-Public Use
  Company Number: US-ABBOTT-11P-163-0860229-00

PATIENT
  Age: 66 Year
  Sex: Female

DRUGS (11)
  1. RESTASIS [Concomitant]
     Indication: PRODUCT USED FOR UNKNOWN INDICATION
     Dosage: DAILY DOSE: 1 DROP EACH EYE AM AND PM
  2. SYNTHROID [Concomitant]
     Indication: HYPOTHYROIDISM
     Dosage: EVERY MORNING
  3. KLONOPIN [Concomitant]
     Indication: MUSCLE DISORDER
  4. XIBROM [Concomitant]
     Indication: MACULOPATHY
     Dosage: DAILY DOSE: 1 DROP EACH EYE AM AND PM
  5. CELEXA [Concomitant]
     Indication: DEPRESSION
  6. MURO [Concomitant]
     Indication: PRODUCT USED FOR UNKNOWN INDICATION
     Dosage: TO BOTH EYES BEFORE BED
     Route: 047
  7. HUMIRA [Suspect]
     Indication: RHEUMATOID ARTHRITIS
     Route: 058
     Dates: end: 20110901
  8. KLONOPIN [Concomitant]
     Indication: RESTLESS LEGS SYNDROME
     Dosage: EVERY NIGHT
  9. FLEXERIL [Concomitant]
     Indication: FIBROMYALGIA
     Dosage: EVERY NIGHT
  10. CALCIUM +D [Concomitant]
     Indication: MINERAL SUPPLEMENTATION
     Dosage: EVERY MORNING
  11. CENTRUM SILVER [Concomitant]
     Indication: PRODUCT USED FOR UNKNOWN INDICATION
     Dosage: EVERY MORNING

REACTIONS (12)
  - RHINORRHOEA [None]
  - DEVICE BREAKAGE [None]
  - INJECTION SITE HAEMATOMA [None]
  - NASOPHARYNGITIS [None]
  - MONARTHRITIS [None]
  - DEVICE RELATED INFECTION [None]
  - NAUSEA [None]
  - RESPIRATORY TRACT CONGESTION [None]
  - COUGH [None]
  - ARTHRALGIA [None]
  - BASAL CELL CARCINOMA [None]
  - INJECTION SITE HAEMORRHAGE [None]
